FAERS Safety Report 9891579 (Version 2)
Quarter: 2014Q1

REPORT INFORMATION
  Report Type: Spontaneous
  Country: FR (occurrence: FR)
  Receive Date: 20140212
  Receipt Date: 20140217
  Transmission Date: 20141002
  Serious: Yes (Hospitalization)
  Sender: FDA-Public Use
  Company Number: PHHY2014FR015288

PATIENT
  Age: 65 Year
  Sex: Female
  Weight: 89 kg

DRUGS (16)
  1. SANDOSTATIN [Suspect]
     Indication: GASTROINTESTINAL HAEMORRHAGE
     Dosage: 100 UG PER 1 ML BID
     Route: 058
     Dates: start: 20131212, end: 20131216
  2. SANDOSTATIN [Suspect]
     Indication: OFF LABEL USE
  3. SOMATULINE LP 30MG [Suspect]
     Indication: GASTROINTESTINAL HAEMORRHAGE
     Dosage: 30 MG, EVERY 14 DAYS
     Route: 030
     Dates: start: 20131216
  4. SOMATULINE LP 30MG [Suspect]
     Indication: ANGIODYSPLASIA
     Dosage: 30 MG, EVERY 14 DAYS
     Route: 030
     Dates: end: 20131230
  5. SOMATOSTATINE [Suspect]
     Indication: GASTROINTESTINAL HAEMORRHAGE
     Dosage: UNK UKN, BID
     Route: 042
     Dates: start: 20131211, end: 20131216
  6. SOMATOSTATINE [Suspect]
     Indication: OFF LABEL USE
     Dosage: 3 MG, QD
     Route: 042
     Dates: start: 20140107, end: 20140116
  7. CORDARONE [Concomitant]
     Dosage: 1 DF, QD
  8. SINTROM [Concomitant]
     Dosage: UNK UKN, UNK
  9. SINTROM [Concomitant]
     Dosage: 8 MG, UNK
  10. SINTROM [Concomitant]
     Dosage: 2 DF, IN EVENING
  11. DIAMICRON [Concomitant]
     Dosage: 30 MG, UNK
  12. STAGID [Concomitant]
     Dosage: 700 MG, UNK
  13. COVERSYL                                /FRA/ [Concomitant]
     Dosage: 2 MG, QD
  14. LANTUS [Concomitant]
     Dosage: 18 U, QD
  15. SERETIDE [Concomitant]
     Dosage: UNK UKN, UNK
  16. INEXIUM//ESOMEPRAZOLE SODIUM [Concomitant]
     Dosage: 40 MG, UNK

REACTIONS (2)
  - Eosinophilia [Recovering/Resolving]
  - Interstitial lung disease [Not Recovered/Not Resolved]
